FAERS Safety Report 8546573-9 (Version None)
Quarter: 2012Q3

REPORT INFORMATION
  Report Type: 
  Country: None (occurrence: None)
  Receive Date: 20120727
  Receipt Date: 20111227
  Transmission Date: 20120928
  Serious: No
  Sender: FDA-Public Use
  Company Number: US-ASTRAZENECA-2011SE78602

PATIENT
  Age: 66 Year
  Sex: Male

DRUGS (2)
  1. OTHER MEDICATION [Interacting]
  2. SEROQUEL [Suspect]
     Route: 048

REACTIONS (2)
  - FEELING ABNORMAL [None]
  - DRUG INTERACTION [None]
